FAERS Safety Report 7248600-8 (Version None)
Quarter: 2011Q1

REPORT INFORMATION
  Report Type: 
  Country: None (occurrence: None)
  Receive Date: 20110128
  Receipt Date: 20110103
  Transmission Date: 20110831
  Serious: Yes (Death)
  Sender: FDA-Public Use
  Company Number: US-BAYER-2011-001443

PATIENT
  Age: 37 Year
  Sex: Female

DRUGS (11)
  1. DIPHENHYDRAMINE HYDROCHLORIDE [Suspect]
     Route: 048
  2. ETHANOL [Suspect]
     Route: 048
  3. AMLODIPINE [Suspect]
     Route: 048
  4. ZOLPIDEM [Suspect]
     Route: 048
  5. ALPRAZOLAM [Suspect]
     Route: 048
  6. ACETAMINOPHEN [Suspect]
     Route: 048
  7. GABAPENTIN [Suspect]
     Route: 048
  8. OXYCODONE HCL [Suspect]
     Route: 048
  9. ANTIDEPRESSANTS [Suspect]
     Route: 048
  10. NAPROXEN SODIUM [Suspect]
     Route: 048
  11. ZIPRASIDONE [Suspect]
     Route: 048

REACTIONS (1)
  - TOXICITY TO VARIOUS AGENTS [None]
